FAERS Safety Report 7236052-3 (Version None)
Quarter: 2011Q1

REPORT INFORMATION
  Report Type: 
  Country: None (occurrence: None)
  Receive Date: 20110120
  Receipt Date: 20110112
  Transmission Date: 20110831
  Serious: Yes (Hospitalization)
  Sender: FDA-Public Use
  Company Number: NL-B.I. PHARMACEUTICALS,INC./RIDGEFIELD-2011-NL-00017NL

PATIENT
  Sex: Female

DRUGS (4)
  1. PAROXETINE TABLET 10MG [Concomitant]
     Dosage: 1 ANZ
     Dates: start: 20080519, end: 20100923
  2. OXAZEPAM TABLET 10MG [Concomitant]
     Dosage: 10 MG
     Dates: start: 20100618
  3. BETAHISTINE TABLET 16MG [Concomitant]
     Dosage: 48 MG
     Dates: start: 20071020
  4. MICARDIS [Suspect]
     Indication: HYPERTENSION
     Dosage: 20 MG
     Dates: start: 20100712, end: 20100901

REACTIONS (3)
  - PAIN IN JAW [None]
  - CHEST PAIN [None]
  - INFLUENZA LIKE ILLNESS [None]
